FAERS Safety Report 15718409 (Version 1)
Quarter: 2018Q4

REPORT INFORMATION
  Report Type: Spontaneous
  Country: US (occurrence: US)
  Receive Date: 20181213
  Receipt Date: 20181213
  Transmission Date: 20190205
  Serious: No
  Sender: FDA-Public Use
  Company Number: US-ASTELLAS-2018US003549

PATIENT
  Age: 75 Year
  Sex: Female

DRUGS (2)
  1. TARCEVA [Suspect]
     Active Substance: ERLOTINIB HYDROCHLORIDE
     Indication: LUNG NEOPLASM MALIGNANT
     Route: 048
     Dates: start: 20150821
  2. IMODIUM [Concomitant]
     Active Substance: LOPERAMIDE HYDROCHLORIDE
     Indication: PRODUCT USED FOR UNKNOWN INDICATION
     Dosage: UNK, UNKNOWN FREQ.
     Route: 065

REACTIONS (10)
  - Onychomadesis [Unknown]
  - Eyelid margin crusting [Unknown]
  - Dry eye [Unknown]
  - Weight decreased [Unknown]
  - Nasal crusting [Unknown]
  - Diarrhoea [Unknown]
  - Decreased appetite [Unknown]
  - Nail disorder [Not Recovered/Not Resolved]
  - Ocular hyperaemia [Unknown]
  - Dry skin [Unknown]

NARRATIVE: CASE EVENT DATE: 201605
